FAERS Safety Report 7499850-7 (Version None)
Quarter: 2011Q2

REPORT INFORMATION
  Report Type: 
  Country: None (occurrence: None)
  Receive Date: 20110524
  Receipt Date: 20110517
  Transmission Date: 20111010
  Serious: Yes (Life-Threatening)
  Sender: FDA-Public Use
  Company Number: JP-ELI_LILLY_AND_COMPANY-JP201104006043

PATIENT
  Sex: Male
  Weight: 44 kg

DRUGS (8)
  1. ALIMTA [Suspect]
     Indication: LUNG ADENOCARCINOMA RECURRENT
     Dosage: 680 MG, DAY1
     Route: 042
     Dates: start: 20110413, end: 20110413
  2. VITAMIN B-12 [Concomitant]
  3. CORTICOSTEROIDS [Concomitant]
  4. ALOXI [Concomitant]
     Dosage: UNK
     Route: 065
  5. EMEND [Concomitant]
     Dosage: UNK
     Route: 065
  6. FOLIC ACID [Concomitant]
  7. RANDA [Concomitant]
     Indication: LUNG ADENOCARCINOMA RECURRENT
     Dosage: 100 MG, 1DAY
     Route: 042
     Dates: start: 20110413, end: 20110413
  8. LASIX [Concomitant]
     Indication: POLYURIA
     Dosage: 40 MG, QD
     Route: 042
     Dates: start: 20110413, end: 20110413

REACTIONS (2)
  - NAUSEA [None]
  - ATRIOVENTRICULAR BLOCK SECOND DEGREE [None]
